FAERS Safety Report 17997162 (Version 1)
Quarter: 2020Q3

REPORT INFORMATION
  Report Type: Not Available
  Country: US (occurrence: US)
  Receive Date: 20200708
  Receipt Date: 20200708
  Transmission Date: 20201103
  Serious: No
  Sender: FDA-Public Use
  Company Number: US-NEUROCRINE BIOSCIENCES INC.-2020NBI02181

PATIENT
  Age: 70 Year
  Sex: Male

DRUGS (2)
  1. INGREZZA [Suspect]
     Active Substance: VALBENAZINE
     Indication: EXTRAPYRAMIDAL DISORDER
     Route: 048
     Dates: start: 20200102, end: 20200501
  2. XANAX [Concomitant]
     Active Substance: ALPRAZOLAM
     Indication: EXTRAPYRAMIDAL DISORDER
     Dosage: EVERY 2 TO 6 HOURS AS NEEDED

REACTIONS (2)
  - Hypophagia [Unknown]
  - Malnutrition [Unknown]
